FAERS Safety Report 17877411 (Version 1)
Quarter: 2020Q2

REPORT INFORMATION
  Report Type: Spontaneous
  Country: FR (occurrence: FR)
  Receive Date: 20200609
  Receipt Date: 20200609
  Transmission Date: 20200714
  Serious: Yes (Hospitalization)
  Sender: FDA-Public Use
  Company Number: FR-PFIZER INC-2020222615

PATIENT
  Age: 18 Year
  Sex: Male

DRUGS (3)
  1. CANNABIS [Suspect]
     Active Substance: CANNABIS SATIVA SUBSP. INDICA TOP
     Indication: DRUG ABUSE
     Dosage: UNK (NOT SPECIFIED)
  2. XANAX [Suspect]
     Active Substance: ALPRAZOLAM
     Dosage: UNK (NOT SPECIFIED)
  3. CODEINE [Suspect]
     Active Substance: CODEINE
     Indication: DRUG ABUSE
     Dosage: UNK (NOT SPECIFIED)

REACTIONS (3)
  - Suicidal ideation [Recovered/Resolved]
  - Drug abuse [Not Recovered/Not Resolved]
  - Hallucination [Not Recovered/Not Resolved]

NARRATIVE: CASE EVENT DATE: 202002
